FAERS Safety Report 5224706-X (Version None)
Quarter: 2007Q1

REPORT INFORMATION
  Report Type: 
  Country: None (occurrence: None)
  Receive Date: 20070131
  Receipt Date: 20070123
  Transmission Date: 20070707
  Serious: Yes (Other)
  Sender: FDA-Public Use
  Company Number: US-JNJFOC-20070106309

PATIENT
  Sex: Female
  Weight: 70 kg

DRUGS (2)
  1. REMICADE [Suspect]
     Dosage: DOSE = 4 VIALS
     Route: 042
  2. REMICADE [Suspect]
     Indication: CROHN'S DISEASE
     Dosage: THREE INFUSIONS, DATES UNSPECIFIED
     Route: 042

REACTIONS (3)
  - FATIGUE [None]
  - FLUID RETENTION [None]
  - PALPITATIONS [None]
